FAERS Safety Report 8987837 (Version 1)
Quarter: 2012Q4

REPORT INFORMATION
  Report Type: 
  Country: US (occurrence: US)
  Receive Date: 20121227
  Receipt Date: 20121227
  Transmission Date: 20130627
  Serious: Yes (Death)
  Sender: FDA-Public Use
  Company Number: US-GLAXOSMITHKLINE-A1006064A

PATIENT
  Age: 89 Year
  Sex: Male

DRUGS (12)
  1. ADVAIR [Suspect]
     Indication: CHRONIC OBSTRUCTIVE PULMONARY DISEASE
     Dosage: 1PUFF Twice per day
     Route: 055
     Dates: start: 2006
  2. VENTOLIN [Suspect]
     Indication: CHRONIC OBSTRUCTIVE PULMONARY DISEASE
     Dosage: 2PUFF Four times per day
     Route: 055
  3. SPIRIVA [Concomitant]
  4. OXYGEN [Concomitant]
  5. HCTZ [Concomitant]
  6. ENALAPRIL [Concomitant]
  7. PANTOPRAZOLE [Concomitant]
  8. METOPROLOL [Concomitant]
  9. POTASSIUM PHOSPHATE [Concomitant]
  10. AMLODIPINE [Concomitant]
  11. BABY ASPIRIN [Concomitant]
  12. LIPITOR [Concomitant]

REACTIONS (5)
  - Death [Fatal]
  - Cardiac failure congestive [Unknown]
  - Hepatic cancer [Unknown]
  - Lung neoplasm malignant [Unknown]
  - Chronic obstructive pulmonary disease [Unknown]
